FAERS Safety Report 18914581 (Version 1)
Quarter: 2021Q1

REPORT INFORMATION
  Report Type: Other
  Country: FR (occurrence: FR)
  Receive Date: 20210219
  Receipt Date: 20210219
  Transmission Date: 20210420
  Serious: Yes (Other)
  Sender: FDA-Public Use
  Company Number: FR-ROCHE-2768839

PATIENT
  Age: 40 Year
  Sex: Male

DRUGS (6)
  1. TOCILIZUMAB. [Suspect]
     Active Substance: TOCILIZUMAB
     Indication: RHEUMATOID ARTHRITIS
     Route: 042
  2. ETANERCEPT [Concomitant]
     Active Substance: ETANERCEPT
  3. LEFLUNOMIDE. [Concomitant]
     Active Substance: LEFLUNOMIDE
  4. RITUXIMAB. [Concomitant]
     Active Substance: RITUXIMAB
     Indication: RHEUMATOID ARTHRITIS
  5. ABATACEPT [Concomitant]
     Active Substance: ABATACEPT
  6. ADALIMUMAB [Concomitant]
     Active Substance: ADALIMUMAB

REACTIONS (1)
  - Ulcerative keratitis [Unknown]
